FAERS Safety Report 25749421 (Version 1)
Quarter: 2025Q3

REPORT INFORMATION
  Report Type: Spontaneous
  Country: US (occurrence: US)
  Receive Date: 20250902
  Receipt Date: 20250902
  Transmission Date: 20251020
  Serious: No
  Sender: ALEXION PHARMACEUTICALS
  Company Number: US-PROCTER+GAMBLE-PH25013844

PATIENT

DRUGS (3)
  1. PRILOSEC OTC [Suspect]
     Active Substance: OMEPRAZOLE MAGNESIUM
     Indication: Abdominal pain upper
     Dosage: 1 TABLET, 1 /DAY
     Dates: start: 202506, end: 202506
  2. PRILOSEC OTC [Suspect]
     Active Substance: OMEPRAZOLE MAGNESIUM
     Dosage: 1 TABLET, 2 /DAY (STARTED AGAIN, ONE IN THE MORNING AND ONE IN THE EVENING)
     Dates: start: 202506, end: 2025
  3. PRILOSEC OTC [Suspect]
     Active Substance: OMEPRAZOLE MAGNESIUM
     Dosage: 1 TABLET, STARTED AGAIN, EVERY 2 DAY (EVERY OTHER DAY)
     Dates: start: 2025

REACTIONS (9)
  - Abdominal pain upper [Unknown]
  - Dyspepsia [Unknown]
  - Condition aggravated [Unknown]
  - Gastrointestinal sounds abnormal [Unknown]
  - Discomfort [Unknown]
  - Off label use [Unknown]
  - Prescribed overdose [Unknown]
  - Product use in unapproved indication [Unknown]
  - Inappropriate schedule of product administration [Unknown]

NARRATIVE: CASE EVENT DATE: 20250101
